FAERS Safety Report 11358790 (Version 1)
Quarter: 2015Q3

REPORT INFORMATION
  Report Type: Report from Study
  Country: US (occurrence: None)
  Receive Date: 20150716
  Receipt Date: 20150716
  Transmission Date: 20151125
  Serious: Yes (Hospitalization)
  Sender: FDA-Public Use
  Company Number: 2015SIPUSA00696

PATIENT
  Age: 80 Year
  Sex: Male
  Weight: 85 kg

DRUGS (24)
  1. MIRALAX [Concomitant]
     Active Substance: POLYETHYLENE GLYCOL 3350
  2. IBUPROFEN (IBUPROFEN) [Concomitant]
     Active Substance: IBUPROFEN
  3. CHOLECALCIFEROL (CHOLECALCIFEROL) [Concomitant]
  4. MEGACE [Concomitant]
     Active Substance: MEGESTROL ACETATE
  5. PROSCAR [Concomitant]
     Active Substance: FINASTERIDE
  6. MVI (VITAMINS NOS) [Concomitant]
  7. CALCIUM (CALCIUM CARBONATE) [Concomitant]
  8. FUROSEMIDE (FUROSEMIDE SODIUM) [Concomitant]
  9. AMIODARONE (AMIODARONE HYDROCHLORIDE) [Concomitant]
  10. PEPCID AC (FAMOTIDINE) [Concomitant]
  11. MELATONIN (MELATONIN) [Concomitant]
     Active Substance: MELATONIN
  12. HYDROCODONE (HYDROCODONE BITARTRATE) [Concomitant]
     Active Substance: HYDROCODONE BITARTRATE
  13. ENZALUTAMIDE [Suspect]
     Active Substance: ENZALUTAMIDE
     Indication: PROSTATE CANCER METASTATIC
     Dates: start: 20140602, end: 20150303
  14. COMPAZINE [Concomitant]
     Active Substance: PROCHLORPERAZINE MALEATE
  15. TYLENOL [Concomitant]
     Active Substance: ACETAMINOPHEN
  16. METOPROLOL (METOPROLOL) [Concomitant]
     Active Substance: METOPROLOL
  17. PROVENGE [Suspect]
     Active Substance: SIPULEUCEL-T
     Indication: PROSTATE CANCER METASTATIC
     Route: 042
     Dates: start: 20140324, end: 20140324
  18. SUCRALFATE (SUCRALFATE) [Concomitant]
  19. XANAX [Concomitant]
     Active Substance: ALPRAZOLAM
  20. ELIGARD (LEUPRORELIN ACETATE) [Concomitant]
  21. ASPIRIN (ACETYLSALICYLIC ACID) [Concomitant]
     Active Substance: ASPIRIN
  22. LIPITOR [Concomitant]
     Active Substance: ATORVASTATIN CALCIUM
  23. FLOMAX [Concomitant]
     Active Substance: TAMSULOSIN HYDROCHLORIDE
  24. TURNS (CALCIUM CARBONATE) [Concomitant]

REACTIONS (1)
  - Spinal cord compression [None]

NARRATIVE: CASE EVENT DATE: 20150403
